FAERS Safety Report 17250761 (Version 1)
Quarter: 2020Q1

REPORT INFORMATION
  Report Type: Spontaneous
  Country: FR (occurrence: FR)
  Receive Date: 20200109
  Receipt Date: 20200109
  Transmission Date: 20200409
  Serious: Yes (Death)
  Sender: FDA-Public Use
  Company Number: FR-TEVA-2020-FR-1164393

PATIENT
  Age: 70 Year
  Sex: Male
  Weight: 130 kg

DRUGS (6)
  1. ATORVASTATINE [Suspect]
     Active Substance: ATORVASTATIN
     Indication: MYOCARDIAL INFARCTION
     Dosage: 80 MG
     Route: 048
     Dates: start: 20191116, end: 20191205
  2. RAMIPRIL. [Suspect]
     Active Substance: RAMIPRIL
     Indication: MYOCARDIAL INFARCTION
     Dosage: 1.25 MG
     Route: 048
     Dates: start: 20191116
  3. PRASUGREL. [Suspect]
     Active Substance: PRASUGREL
     Indication: MYOCARDIAL INFARCTION
     Dosage: 10 MG
     Route: 048
     Dates: start: 20191116
  4. NICOPATCH [Suspect]
     Active Substance: NICOTINE
     Indication: MYOCARDIAL INFARCTION
     Dosage: 35 MG / 20 CM?; 1 DF
     Route: 062
     Dates: start: 20191116
  5. BISOPROLOL (FUMARATE DE) [Suspect]
     Active Substance: BISOPROLOL FUMARATE
     Indication: MYOCARDIAL INFARCTION
     Dosage: 2.5 MG
     Route: 048
     Dates: start: 20191116
  6. KARDEGIC [Suspect]
     Active Substance: ASPIRIN DL-LYSINE
     Indication: MYOCARDIAL INFARCTION
     Dosage: 75 MG
     Route: 048
     Dates: start: 20191116

REACTIONS (2)
  - Liver disorder [Fatal]
  - Rhabdomyolysis [Fatal]

NARRATIVE: CASE EVENT DATE: 20191204
